FAERS Safety Report 18952948 (Version 2)
Quarter: 2021Q1

REPORT INFORMATION
  Report Type: Spontaneous
  Country: US (occurrence: US)
  Receive Date: 20210301
  Receipt Date: 20210309
  Transmission Date: 20210420
  Serious: Yes (Death)
  Sender: FDA-Public Use
  Company Number: US-BIOVITRUM-2021US2073

PATIENT
  Age: 4 Month
  Sex: Female
  Weight: 4 kg

DRUGS (8)
  1. SYNAGIS [Suspect]
     Active Substance: PALIVIZUMAB
     Indication: TRUNCUS ARTERIOSUS PERSISTENT
  2. VITAMIN D3 [Concomitant]
     Active Substance: CHOLECALCIFEROL
     Dosage: 10(400)/ML DROPS
  3. MULTIVITAMIN?IRON?FLUORIDE [Concomitant]
  4. AMOXICILLIN. [Concomitant]
     Active Substance: AMOXICILLIN
     Dosage: 125 MG/5ML SUSP RECON
  5. ASPIRIN. [Concomitant]
     Active Substance: ASPIRIN
     Dosage: CHEW
  6. SYNAGIS [Suspect]
     Active Substance: PALIVIZUMAB
     Indication: DOUBLE INLET LEFT VENTRICLE
     Route: 030
     Dates: start: 202011
  7. SYNAGIS [Suspect]
     Active Substance: PALIVIZUMAB
     Indication: PREMATURE BABY
  8. SYNAGIS [Suspect]
     Active Substance: PALIVIZUMAB
     Indication: CONGENITAL GREAT VESSEL ANOMALY

REACTIONS (1)
  - Death [Fatal]

NARRATIVE: CASE EVENT DATE: 20210223
